FAERS Safety Report 17984948 (Version 1)
Quarter: 2020Q3

REPORT INFORMATION
  Report Type: Spontaneous
  Country: GB (occurrence: GB)
  Receive Date: 20200706
  Receipt Date: 20200706
  Transmission Date: 20201103
  Serious: Yes (Other)
  Sender: FDA-Public Use
  Company Number: GB-ALLERGAN-2025179US

PATIENT
  Sex: Male

DRUGS (1)
  1. NITROGLYCERIN ? BP [Suspect]
     Active Substance: NITROGLYCERIN
     Indication: ANAL FISSURE
     Dosage: UNK UNK, TID

REACTIONS (6)
  - Proctalgia [Not Recovered/Not Resolved]
  - Rectal haemorrhage [Not Recovered/Not Resolved]
  - Inappropriate schedule of product administration [Unknown]
  - Anorectal disorder [Not Recovered/Not Resolved]
  - Anal fissure [Recovered/Resolved]
  - Anorectal discomfort [Not Recovered/Not Resolved]
